FAERS Safety Report 21461571 (Version 1)
Quarter: 2022Q4

REPORT INFORMATION
  Report Type: Report from Study
  Country: US (occurrence: US)
  Receive Date: 20221015
  Receipt Date: 20221015
  Transmission Date: 20230113
  Serious: Yes (Other)
  Sender: FDA-Public Use
  Company Number: US-ABBVIE-4152128

PATIENT
  Age: 72 Year
  Sex: Female

DRUGS (4)
  1. HUMIRA [Suspect]
     Active Substance: ADALIMUMAB
     Indication: Product used for unknown indication
     Route: 058
  2. Pfizer/BioNTech [Concomitant]
     Indication: COVID-19 immunisation
     Dosage: 1ST DOSE, ONCE
     Route: 030
  3. Pfizer/BioNTech [Concomitant]
     Indication: COVID-19 immunisation
     Dosage: 2ND DOSE, ONCE
     Route: 030
  4. Pfizer/BioNTech [Concomitant]
     Indication: COVID-19 immunisation
     Dosage: BOOSTER VACCINE, ONCE
     Route: 030

REACTIONS (10)
  - Knee arthroplasty [Recovered/Resolved]
  - Cerebrovascular accident [Recovered/Resolved]
  - Knee arthroplasty [Recovered/Resolved]
  - COVID-19 [Recovered/Resolved]
  - Myocardial infarction [Recovered/Resolved]
  - Knee arthroplasty [Recovered/Resolved]
  - Fall [Recovered/Resolved]
  - Joint swelling [Recovered/Resolved]
  - Arthropathy [Unknown]
  - Medical device site injury [Recovered/Resolved]

NARRATIVE: CASE EVENT DATE: 20120104
